FAERS Safety Report 7347107-7 (Version None)
Quarter: 2011Q1

REPORT INFORMATION
  Report Type: 
  Country: None (occurrence: None)
  Receive Date: 20110311
  Receipt Date: 20110106
  Transmission Date: 20110831
  Serious: No
  Sender: FDA-Public Use
  Company Number: US-B.I. PHARMACEUTICALS,INC./RIDGEFIELD-2011-BP-04766BP

PATIENT
  Sex: Male

DRUGS (3)
  1. ASPIRIN [Concomitant]
  2. PRADAXA [Suspect]
  3. DIURETICS (WATER PILLS) [Concomitant]
     Indication: DIURETIC THERAPY

REACTIONS (1)
  - CONSTIPATION [None]
